FAERS Safety Report 23768010 (Version 1)
Quarter: 2024Q2

REPORT INFORMATION
  Report Type: Spontaneous
  Country: US (occurrence: None)
  Receive Date: 20240419
  Receipt Date: 20240419
  Transmission Date: 20240717
  Serious: Yes (Other)
  Sender: FDA-Public Use
  Company Number: None

PATIENT
  Sex: Female

DRUGS (2)
  1. CIMZIA [Suspect]
     Active Substance: CERTOLIZUMAB PEGOL
     Indication: Psoriatic arthropathy
     Dosage: FREQ: INJECT 400MG UNDER THE SKIN (SUBCUTANEOUS INJECTION) EVERY OTHER WEEK INTO THE ARMS, THIGHS Q
     Route: 058
     Dates: start: 20230610
  2. CIMZIA [Concomitant]
     Active Substance: CERTOLIZUMAB PEGOL

REACTIONS (6)
  - Disease progression [None]
  - Psoriatic arthropathy [None]
  - Rash [None]
  - Discomfort [None]
  - Brain neoplasm [None]
  - Intentional dose omission [None]
